FAERS Safety Report 15629484 (Version 2)
Quarter: 2019Q2

REPORT INFORMATION
  Report Type: Spontaneous
  Country: US (occurrence: US)
  Receive Date: 20181117
  Receipt Date: 20190517
  Transmission Date: 20190711
  Serious: No
  Sender: FDA-Public Use
  Company Number: US-CELLTRION INC.-2018US022609

PATIENT

DRUGS (9)
  1. SIMPONI [Concomitant]
     Active Substance: GOLIMUMAB
     Dosage: UNK
     Dates: start: 201601, end: 201801
  2. METHOTREXATE. [Concomitant]
     Active Substance: METHOTREXATE
     Dosage: UNK
     Route: 048
     Dates: start: 2009, end: 201205
  3. METHOTREXATE. [Concomitant]
     Active Substance: METHOTREXATE
     Indication: RHEUMATOID ARTHRITIS
     Dosage: UNK
     Route: 048
     Dates: start: 201601, end: 201801
  4. ANAKINRA [Concomitant]
     Active Substance: ANAKINRA
  5. REMICADE [Concomitant]
     Active Substance: INFLIXIMAB
  6. XELJANZ [Concomitant]
     Active Substance: TOFACITINIB CITRATE
     Dosage: 11 MG, QD, UPTO 28 DAYS, 28 TABLETS, 5 REFILLS
     Route: 048
  7. HUMIRA [Suspect]
     Active Substance: ADALIMUMAB
     Indication: RHEUMATOID ARTHRITIS
     Dosage: 40MG/ 0.8 ML EVERY OTHER WEEK
     Route: 058
     Dates: start: 201010, end: 201012
  8. INFLIXIMAB (UNKNOWN) [Suspect]
     Active Substance: INFLIXIMAB
     Indication: PRODUCT USED FOR UNKNOWN INDICATION
     Dosage: UNK
     Route: 065
  9. ENBREL [Suspect]
     Active Substance: ETANERCEPT
     Indication: RHEUMATOID ARTHRITIS
     Dosage: 50 MG QWK
     Route: 058
     Dates: start: 20091015, end: 20101014

REACTIONS (3)
  - Tachycardia [Unknown]
  - Drug hypersensitivity [Not Recovered/Not Resolved]
  - Heart rate irregular [Unknown]
